FAERS Safety Report 4340719-4 (Version None)
Quarter: 2004Q2

REPORT INFORMATION
  Report Type: 
  Country: None (occurrence: None)
  Receive Date: 20040419
  Receipt Date: 20040408
  Transmission Date: 20050107
  Serious: Yes (Hospitalization, Other)
  Sender: FDA-Public Use
  Company Number: 200412795US

PATIENT
  Sex: Female

DRUGS (16)
  1. ARAVA [Suspect]
     Indication: RHEUMATOID ARTHRITIS
     Dates: start: 20000821, end: 20010921
  2. METHOTREXATE [Concomitant]
     Dates: start: 19930101
  3. PREDNISONE [Concomitant]
     Indication: RHEUMATOID ARTHRITIS
     Route: 048
     Dates: start: 19930101
  4. LORCET-HD [Concomitant]
  5. PRILOSEC [Concomitant]
     Indication: GASTROOESOPHAGEAL REFLUX DISEASE
  6. PREMARIN [Concomitant]
     Indication: HORMONE REPLACEMENT THERAPY
  7. FOSAMAX [Concomitant]
     Route: 048
  8. CALCIUM WITH VITAMIN D [Concomitant]
     Dosage: DOSE: UNK
  9. TYLENOL (CAPLET) [Concomitant]
  10. VENTOLIN [Concomitant]
     Route: 055
     Dates: start: 20000101
  11. PULMICORT [Concomitant]
     Route: 055
     Dates: start: 20000101
  12. VIOXX [Concomitant]
     Indication: OSTEOARTHRITIS
     Dates: start: 20000101
  13. IRON [Concomitant]
  14. ROBAXIN [Concomitant]
     Route: 048
     Dates: start: 20010424
  15. COUMADIN [Concomitant]
     Route: 048
     Dates: start: 20010518
  16. DARVOCET-N 100 [Concomitant]
     Dates: start: 19930101

REACTIONS (24)
  - ABDOMINAL PAIN [None]
  - BACK PAIN [None]
  - BRONCHITIS [None]
  - CHOLECYSTECTOMY [None]
  - COUGH [None]
  - DIARRHOEA [None]
  - DYSPEPSIA [None]
  - DYSPHAGIA [None]
  - FOOD INTOLERANCE [None]
  - HAEMATOCRIT DECREASED [None]
  - HAEMOGLOBIN DECREASED [None]
  - HIATUS HERNIA [None]
  - HYPERPLASIA [None]
  - HYPOAESTHESIA [None]
  - IMMUNOSUPPRESSION [None]
  - NASAL CONGESTION [None]
  - PAIN [None]
  - PAIN IN EXTREMITY [None]
  - PARAESTHESIA [None]
  - RADICULOPATHY [None]
  - RED BLOOD CELL COUNT DECREASED [None]
  - SINUS DISORDER [None]
  - WEIGHT DECREASED [None]
  - WHITE BLOOD CELL COUNT DECREASED [None]
